FAERS Safety Report 5628173-3 (Version None)
Quarter: 2008Q1

REPORT INFORMATION
  Report Type: 
  Country: None (occurrence: None)
  Receive Date: 20080215
  Receipt Date: 20080206
  Transmission Date: 20080703
  Serious: Yes (Other)
  Sender: FDA-Public Use
  Company Number: FR-GILEAD-2007-0013515

PATIENT
  Sex: Male
  Weight: 78 kg

DRUGS (8)
  1. TRUVADA [Suspect]
     Indication: HIV INFECTION
     Route: 048
     Dates: start: 20070822
  2. SUSTIVA [Suspect]
     Indication: HIV INFECTION
     Route: 048
     Dates: start: 20070822
  3. BACTRIM [Suspect]
     Dates: start: 20070613
  4. RIFINAH [Suspect]
     Indication: TUBERCULOSIS
     Route: 048
     Dates: start: 20070812
  5. RIFAMPICIN [Suspect]
     Indication: TUBERCULOSIS
     Route: 048
     Dates: start: 20070612
  6. ISONIAZID [Concomitant]
     Indication: TUBERCULOSIS
     Dates: start: 20070612, end: 20070812
  7. ETHAMBUTOL HYDROCHLORIDE [Concomitant]
     Indication: TUBERCULOSIS
     Dates: start: 20070612, end: 20070812
  8. IZILOX [Concomitant]
     Indication: TUBERCULOSIS
     Dates: start: 20070612, end: 20070812

REACTIONS (2)
  - HEPATITIS ACUTE [None]
  - IMMUNE RECONSTITUTION SYNDROME [None]
